FAERS Safety Report 4883794-0 (Version None)
Quarter: 2006Q1

REPORT INFORMATION
  Report Type: 
  Country: None (occurrence: None)
  Receive Date: 20060113
  Receipt Date: 20051229
  Transmission Date: 20060701
  Serious: Yes (Other)
  Sender: FDA-Public Use
  Company Number: US200512004467

PATIENT
  Age: 67 Year
  Sex: Male
  Weight: 81.6 kg

DRUGS (3)
  1. ALIMTA [Suspect]
     Indication: PERITONEAL MESOTHELIOMA MALIGNANT
     Dosage: 980 MG, OTHER,
     Dates: start: 20050501
  2. CISPLATIN [Concomitant]
  3. CARBOPLATIN [Concomitant]

REACTIONS (6)
  - ARTHRALGIA [None]
  - DISCOMFORT [None]
  - JOINT EFFUSION [None]
  - MUSCULOSKELETAL STIFFNESS [None]
  - NEUROPATHY [None]
  - OEDEMA PERIPHERAL [None]
